FAERS Safety Report 5876745-3 (Version None)
Quarter: 2008Q3

REPORT INFORMATION
  Report Type: 
  Country: None (occurrence: None)
  Receive Date: 20080909
  Receipt Date: 20080909
  Transmission Date: 20090109
  Serious: No
  Sender: FDA-Public Use
  Company Number: None

PATIENT
  Age: 68 Year
  Sex: Female
  Weight: 70.7611 kg

DRUGS (1)
  1. RECLAST [Suspect]
     Indication: OSTEOPOROSIS
     Dosage: ONE TIME IV
     Route: 042
     Dates: start: 20080827, end: 20080828

REACTIONS (5)
  - BEDRIDDEN [None]
  - FEELING ABNORMAL [None]
  - GAIT DISTURBANCE [None]
  - MOVEMENT DISORDER [None]
  - PAIN [None]
